FAERS Safety Report 7996844-X (Version None)
Quarter: 2011Q4

REPORT INFORMATION
  Report Type: 
  Country: None (occurrence: None)
  Receive Date: 20111221
  Receipt Date: 20111213
  Transmission Date: 20120403
  Serious: Yes (Other)
  Sender: FDA-Public Use
  Company Number: FR-JNJFOC-20111207876

PATIENT
  Age: 53 Year
  Sex: Male

DRUGS (1)
  1. TOPIRAMATE [Suspect]
     Indication: EPILEPSY
     Dosage: DURING SEVERAL YEARS
     Route: 048

REACTIONS (2)
  - ARRHYTHMIA [None]
  - DYSPNOEA [None]
